FAERS Safety Report 18580262 (Version 1)
Quarter: 2020Q4

REPORT INFORMATION
  Report Type: Spontaneous
  Country: FR (occurrence: FR)
  Receive Date: 20201204
  Receipt Date: 20201204
  Transmission Date: 20210114
  Serious: Yes (Other)
  Sender: FDA-Public Use
  Company Number: FR-009507513-2011FRA016914

PATIENT
  Age: 18 Year
  Sex: Female

DRUGS (1)
  1. MIRTAZAPINE. [Suspect]
     Active Substance: MIRTAZAPINE
     Dosage: NR
     Route: 065

REACTIONS (1)
  - Victim of chemical submission [Unknown]

NARRATIVE: CASE EVENT DATE: 20190811
